FAERS Safety Report 6511292-7 (Version None)
Quarter: 2009Q4

REPORT INFORMATION
  Report Type: 
  Country: None (occurrence: None)
  Receive Date: 20091222
  Receipt Date: 20090324
  Transmission Date: 20100525
  Serious: No
  Sender: FDA-Public Use
  Company Number: US-ASTRAZENECA-2009UW07461

PATIENT
  Sex: Female
  Weight: 61.7 kg

DRUGS (2)
  1. CRESTOR [Suspect]
     Route: 048
  2. PRILOSEC [Concomitant]
     Route: 048

REACTIONS (3)
  - CHEST PAIN [None]
  - HYPOTENSION [None]
  - MYALGIA [None]
